FAERS Safety Report 5853388-9 (Version None)
Quarter: 2008Q3

REPORT INFORMATION
  Report Type: 
  Country: None (occurrence: None)
  Receive Date: 20080820
  Receipt Date: 20071206
  Transmission Date: 20090109
  Serious: Yes (Death)
  Sender: FDA-Public Use
  Company Number: US023930

PATIENT
  Age: 65 Year
  Sex: Male

DRUGS (7)
  1. ARSENIC TRIOXIDE [Suspect]
     Indication: MYELODYSPLASTIC SYNDROME
     Dosage: UNK INTRAVENOUS DRIP
     Route: 041
     Dates: start: 20070813, end: 20071123
  2. FUROSEMIDE [Concomitant]
  3. PANTOPRAZOLE [Concomitant]
  4. METRONIDAZOLE [Concomitant]
  5. PIPERICILLIN [Concomitant]
  6. TAZOBACTAM [Concomitant]
  7. SELEPARINA [Concomitant]

REACTIONS (7)
  - ACUTE ABDOMEN [None]
  - CHEST PAIN [None]
  - DEEP VEIN THROMBOSIS [None]
  - DISSEMINATED INTRAVASCULAR COAGULATION [None]
  - PERICARDIAL HAEMORRHAGE [None]
  - PSEUDOMONAL SEPSIS [None]
  - RENAL ISCHAEMIA [None]
